FAERS Safety Report 18331434 (Version 1)
Quarter: 2020Q3

REPORT INFORMATION
  Report Type: Report from Study
  Country: CA (occurrence: CA)
  Receive Date: 20200930
  Receipt Date: 20200930
  Transmission Date: 20201103
  Serious: Yes (Other)
  Sender: FDA-Public Use
  Company Number: CA-JNJFOC-20200938532

PATIENT
  Age: 61 Year
  Sex: Female

DRUGS (1)
  1. STELARA [Suspect]
     Active Substance: USTEKINUMAB
     Indication: CROHN^S DISEASE
     Dosage: ON 18/SEP/2020, THE PATIENT RECEIVED 37TH INJECTION AT 90 MG.
     Route: 058
     Dates: start: 20170607

REACTIONS (3)
  - Incisional hernia [Unknown]
  - Diarrhoea [Unknown]
  - Intestinal resection [Unknown]

NARRATIVE: CASE EVENT DATE: 201912
